FAERS Safety Report 6665230-7 (Version None)
Quarter: 2010Q2

REPORT INFORMATION
  Report Type: 
  Country: None (occurrence: None)
  Receive Date: 20100402
  Receipt Date: 20100319
  Transmission Date: 20101027
  Serious: Yes (Hospitalization)
  Sender: FDA-Public Use
  Company Number: US-ELI_LILLY_AND_COMPANY-US201002001573

PATIENT
  Sex: Female

DRUGS (1)
  1. FORTEO [Suspect]
     Indication: OSTEOPOROSIS
     Dosage: 20 UG, DAILY (1/D)

REACTIONS (5)
  - ASTHENIA [None]
  - CONSTIPATION [None]
  - IRRITABLE BOWEL SYNDROME [None]
  - NAUSEA [None]
  - SMALL INTESTINAL OBSTRUCTION [None]
